FAERS Safety Report 5366340-7 (Version None)
Quarter: 2007Q2

REPORT INFORMATION
  Report Type: 
  Country: None (occurrence: None)
  Receive Date: 20070620
  Receipt Date: 20070620
  Transmission Date: 20071010
  Serious: Yes (Other)
  Sender: FDA-Public Use
  Company Number: None

PATIENT
  Age: 59 Year
  Sex: Female
  Weight: 65.7716 kg

DRUGS (2)
  1. CIPRO [Suspect]
     Indication: URINARY TRACT INFECTION
     Dosage: 1 TABLET TWICE A DAY PO
     Route: 048
     Dates: start: 20070209, end: 20070211
  2. CIPRO [Suspect]
     Indication: URINARY TRACT INFECTION
     Dosage: 1 TABLET TWICE A DAY PO
     Route: 048
     Dates: start: 20070305, end: 20070312

REACTIONS (8)
  - ABDOMINAL PAIN UPPER [None]
  - ANOREXIA [None]
  - DEPRESSION [None]
  - DRY MOUTH [None]
  - INSOMNIA [None]
  - MALAISE [None]
  - METABOLIC DISORDER [None]
  - WEIGHT DECREASED [None]
